FAERS Safety Report 6317306-1 (Version None)
Quarter: 2009Q3

REPORT INFORMATION
  Report Type: 
  Country: None (occurrence: None)
  Receive Date: 20090821
  Receipt Date: 20090814
  Transmission Date: 20100115
  Serious: Yes (Hospitalization)
  Sender: FDA-Public Use
  Company Number: DE-BIOGENIDEC-2009BI024000

PATIENT
  Age: 52 Year
  Sex: Female
  Weight: 70 kg

DRUGS (5)
  1. TYSABRI [Suspect]
     Indication: MULTIPLE SCLEROSIS
     Route: 042
     Dates: start: 20080527, end: 20090217
  2. AMLODIPINE [Concomitant]
     Route: 048
  3. ENALAPRIL MALEATE [Concomitant]
     Route: 048
  4. SOLIFENACIN [Concomitant]
     Indication: URINARY TRACT INFECTION
     Route: 048
  5. NIFURETTEN [Concomitant]
     Indication: URINARY TRACT INFECTION
     Route: 048

REACTIONS (1)
  - PSORIASIS [None]
